FAERS Safety Report 22013316 (Version 1)
Quarter: 2023Q1

REPORT INFORMATION
  Report Type: Spontaneous
  Country: DE (occurrence: DE)
  Receive Date: 20230220
  Receipt Date: 20230220
  Transmission Date: 20230418
  Serious: Yes (Death, Hospitalization)
  Sender: FDA-Public Use
  Company Number: DE-JNJFOC-20230223924

PATIENT
  Age: 7 Decade
  Sex: Female

DRUGS (4)
  1. DEXAMETHASONE [Suspect]
     Active Substance: DEXAMETHASONE
     Indication: Plasma cell myeloma
     Dosage: DATE OF THE LAST DOSAGE 21/NOV/2022
     Route: 065
     Dates: start: 20200616, end: 20221121
  2. LENALIDOMIDE [Suspect]
     Active Substance: LENALIDOMIDE
     Indication: Plasma cell myeloma
     Dosage: DATE OF THE LAST DOSAGE  12-DEC-2022
     Route: 065
     Dates: start: 20220314, end: 20221212
  3. DARATUMUMAB [Suspect]
     Active Substance: DARATUMUMAB
     Indication: Plasma cell myeloma
     Dosage: LINE 1?DATE OF THE LAST DOSAGE 12/NOV/2022
     Route: 042
     Dates: start: 20200616, end: 20221121
  4. ASZORA TRIO CA+D3 [Concomitant]
     Indication: Product used for unknown indication
     Route: 042
     Dates: start: 20200623, end: 20221121

REACTIONS (2)
  - Sepsis [Fatal]
  - Pneumonia [Fatal]

NARRATIVE: CASE EVENT DATE: 20221215
